FAERS Safety Report 7240424-0 (Version None)
Quarter: 2011Q1

REPORT INFORMATION
  Report Type: 
  Country: None (occurrence: None)
  Receive Date: 20110124
  Receipt Date: 20101130
  Transmission Date: 20110831
  Serious: Yes (Hospitalization, Other)
  Sender: FDA-Public Use
  Company Number: US-BAYER-201034578NA

PATIENT
  Sex: Female
  Weight: 108.84 kg

DRUGS (10)
  1. GABAPENTIN [Concomitant]
     Indication: PAIN
     Dosage: 900 MG, QD
     Route: 048
     Dates: start: 20070101
  2. ACYCLOVIR [Concomitant]
     Route: 048
  3. MOTRIN [Concomitant]
     Route: 048
  4. YAZ [Suspect]
     Indication: ENDOMETRIOSIS
     Dosage: UNK UNK, UNK
     Route: 048
     Dates: start: 20000101, end: 20080101
  5. YASMIN [Suspect]
     Indication: ENDOMETRIOSIS
     Dosage: UNK UNK, UNK
     Route: 048
     Dates: start: 20000101, end: 20080101
  6. LORTAB [Concomitant]
     Route: 048
  7. PROZAC [Concomitant]
     Indication: PREMENSTRUAL SYNDROME
     Dosage: 40 MG, PRN
     Route: 048
  8. PRENATAL VITAMINS [Concomitant]
     Indication: VITAMIN SUPPLEMENTATION
     Dosage: 1 DF, QD
     Dates: start: 20070101
  9. INDOMETACIN [Concomitant]
     Dosage: 75 MG, BID
     Route: 048
  10. BENADRYL [Concomitant]
     Indication: MULTIPLE ALLERGIES
     Dosage: 25 MG, PRN
     Route: 048
     Dates: start: 20080101

REACTIONS (4)
  - PULMONARY EMBOLISM [None]
  - TACHYCARDIA [None]
  - CARDIAC VENTRICULAR DISORDER [None]
  - HYPOTENSION [None]
